FAERS Safety Report 5258383-9 (Version None)
Quarter: 2007Q1

REPORT INFORMATION
  Report Type: 
  Country: None (occurrence: None)
  Receive Date: 20070306
  Receipt Date: 20070306
  Transmission Date: 20070707
  Serious: Yes (Hospitalization)
  Sender: FDA-Public Use
  Company Number: None

PATIENT
  Age: 55 Year
  Sex: Male
  Weight: 66 kg

DRUGS (12)
  1. WARFARIN SODIUM [Suspect]
     Indication: ATRIAL FIBRILLATION
     Dosage: 5MG QD X 9D THEN 2.5 X 2DAY
  2. AMIODARONE HCL [Suspect]
     Indication: ATRIAL FIBRILLATION
     Dosage: 200MG PO DAILY
     Route: 048
  3. DIGOXIN [Concomitant]
  4. . [Concomitant]
  5. ASPIRIN [Concomitant]
  6. LIPITOR [Concomitant]
  7. ALLOPURINOL [Concomitant]
  8. DIOVAN [Concomitant]
  9. ISOSORBIDE [Concomitant]
  10. LASIX [Concomitant]
  11. POTASSIUM ACETATE [Concomitant]
  12. COREG [Concomitant]

REACTIONS (5)
  - CARDIOVERSION [None]
  - GINGIVAL BLEEDING [None]
  - HAEMATEMESIS [None]
  - INTERNATIONAL NORMALISED RATIO INCREASED [None]
  - RECTAL HAEMORRHAGE [None]
